FAERS Safety Report 5209504-5 (Version None)
Quarter: 2006Q4

REPORT INFORMATION
  Report Type: 
  Country: None (occurrence: None)
  Receive Date: 20061101
  Receipt Date: 20060609
  Transmission Date: 20070319
  Serious: No
  Sender: FDA-Public Use
  Company Number: 2006PV015369

PATIENT
  Age: 54 Year
  Sex: Male
  Weight: 76.2043 kg

DRUGS (2)
  1. SYMLIN [Suspect]
     Indication: DIABETES MELLITUS INSULIN-DEPENDENT
     Dosage: BID; SC
     Route: 058
     Dates: start: 20060401
  2. INSULIN [Concomitant]

REACTIONS (4)
  - BLOOD GLUCOSE DECREASED [None]
  - EARLY SATIETY [None]
  - FATIGUE [None]
  - NAUSEA [None]
